FAERS Safety Report 16925267 (Version 1)
Quarter: 2020Q3

REPORT INFORMATION
  Report Type: Report from Study
  Country: BR (occurrence: BR)
  Receive Date: 20191016
  Receipt Date: 20191016
  Transmission Date: 20201104
  Serious: Yes (Life-Threatening, Hospitalization, Other)
  Sender: FDA-Public Use
  Company Number: PHHY2013BR053726

PATIENT
  Age: 40 Year
  Sex: Female
  Weight: 61 kg

DRUGS (29)
  1. SYMBICORT [Suspect]
     Active Substance: BUDESONIDE\FORMOTEROL FUMARATE DIHYDRATE
     Indication: PRODUCT USED FOR UNKNOWN INDICATION
     Dosage: UNK UKN, UNK
     Route: 065
  2. ALENIA (BUDESONIDE\FORMOTEROL FUMARATE) [Suspect]
     Active Substance: BUDESONIDE\FORMOTEROL FUMARATE
     Indication: PRODUCT USED FOR UNKNOWN INDICATION
     Dosage: TWICE A DAY, IN THE MORNING AND AT NIGHT.
     Route: 065
  3. FLIXOTIDE [Concomitant]
     Active Substance: FLUTICASONE PROPIONATE
     Indication: PRODUCT USED FOR UNKNOWN INDICATION
     Route: 065
  4. XOLAIR [Suspect]
     Active Substance: OMALIZUMAB
     Dosage: UNK
     Route: 058
     Dates: start: 20131103
  5. XOLAIR [Suspect]
     Active Substance: OMALIZUMAB
     Dosage: 150 MG, EVERY 15 DAYS
     Route: 058
     Dates: start: 20190430
  6. XOLAIR [Suspect]
     Active Substance: OMALIZUMAB
     Dosage: 150 MG, (2 AMPOULE PER MONTH)
     Route: 058
     Dates: start: 2004, end: 2007
  7. XOLAIR [Suspect]
     Active Substance: OMALIZUMAB
     Dosage: 300 MG, QMO (MONTHLY)
     Route: 058
     Dates: start: 20130621
  8. XOLAIR [Suspect]
     Active Substance: OMALIZUMAB
     Dosage: UNK
     Route: 058
     Dates: start: 20130723
  9. AMINOPHILLINE [Suspect]
     Active Substance: AMINOPHYLLINE
     Indication: PRODUCT USED FOR UNKNOWN INDICATION
     Dosage: UNK
     Route: 065
  10. SERETIDE [Concomitant]
     Active Substance: FLUTICASONE PROPIONATE\SALMETEROL XINAFOATE
     Indication: ASTHMA
     Dosage: 2 DF, ONE IN MORNING AND ONE IN NIGHT, STARTED 3 YEARS AGO
     Route: 065
  11. XOLAIR [Suspect]
     Active Substance: OMALIZUMAB
     Dosage: 300 MG, (2 DF) MONTHLY
     Route: 058
     Dates: start: 2005
  12. XOLAIR [Suspect]
     Active Substance: OMALIZUMAB
     Dosage: UNK
     Route: 058
     Dates: start: 201306
  13. XOLAIR [Suspect]
     Active Substance: OMALIZUMAB
     Dosage: UNK
     Route: 058
     Dates: start: 20131108
  14. XOLAIR [Suspect]
     Active Substance: OMALIZUMAB
     Dosage: 150 MG, BIW
     Route: 065
     Dates: start: 20150504
  15. SYMBICORT [Suspect]
     Active Substance: BUDESONIDE\FORMOTEROL FUMARATE DIHYDRATE
     Dosage: 400 MG,
     Route: 065
  16. CEFALIV [Concomitant]
     Indication: PRODUCT USED FOR UNKNOWN INDICATION
     Dosage: UNK UKN, UNK
     Route: 065
  17. XOLAIR [Suspect]
     Active Substance: OMALIZUMAB
     Indication: ASTHMA
     Dosage: 1 DF, (150 MG)
     Route: 058
     Dates: start: 2003, end: 2007
  18. BEROTEC [Suspect]
     Active Substance: FENOTEROL HYDROBROMIDE
     Indication: ASTHMA
     Dosage: 5 DRP,  (EVERY 2 HOURS), STARTED 7 TO 8 YEARS
     Route: 065
  19. SALINE [Concomitant]
     Active Substance: SODIUM CHLORIDE
     Indication: PRODUCT USED FOR UNKNOWN INDICATION
     Dosage: 5 ML, UNK
     Route: 065
  20. AMITRIPTILINA [Concomitant]
     Active Substance: AMITRIPTYLINE HYDROCHLORIDE
     Indication: PRODUCT USED FOR UNKNOWN INDICATION
     Route: 065
  21. XOLAIR [Suspect]
     Active Substance: OMALIZUMAB
     Dosage: 150 MG, EVERY 15 DAYS
     Route: 058
     Dates: start: 20190925
  22. FLUOXETINE [Suspect]
     Active Substance: FLUOXETINE HYDROCHLORIDE
     Indication: PRODUCT USED FOR UNKNOWN INDICATION
     Route: 065
  23. ATROVENT [Suspect]
     Active Substance: IPRATROPIUM BROMIDE
     Indication: PRODUCT USED FOR UNKNOWN INDICATION
     Dosage: UNK (15 TO 20 DROPS ), STARTED 7 TO 8 YEARS
     Route: 065
  24. RELVAR [Concomitant]
     Active Substance: FLUTICASONE FUROATE\VILANTEROL TRIFENATATE
     Indication: PRODUCT USED FOR UNKNOWN INDICATION
     Route: 065
  25. CLENIL A [Concomitant]
     Active Substance: BECLOMETHASONE DIPROPIONATE
     Indication: PRODUCT USED FOR UNKNOWN INDICATION
     Route: 065
  26. HYDROCORTISONE. [Suspect]
     Active Substance: HYDROCORTISONE
     Indication: PRODUCT USED FOR UNKNOWN INDICATION
     Dosage: UNK
     Route: 065
  27. CLONAZEPAM. [Concomitant]
     Active Substance: CLONAZEPAM
     Indication: SOMNOLENCE
     Dosage: 1 DF, EVERY NIGHT
     Route: 048
     Dates: start: 20130630
  28. SPIRIVA [Concomitant]
     Active Substance: TIOTROPIUM BROMIDE MONOHYDRATE
     Indication: PRODUCT USED FOR UNKNOWN INDICATION
     Route: 065
  29. BUSONID [Concomitant]
     Active Substance: BUDESONIDE
     Indication: PRODUCT USED FOR UNKNOWN INDICATION
     Route: 065

REACTIONS (53)
  - General physical health deterioration [Not Recovered/Not Resolved]
  - Drug dependence [Unknown]
  - Contusion [Unknown]
  - Haematoma [Recovered/Resolved]
  - Dyspnoea [Not Recovered/Not Resolved]
  - Weight decreased [Not Recovered/Not Resolved]
  - Rhinorrhoea [Not Recovered/Not Resolved]
  - Mass [Unknown]
  - Hypoacusis [Unknown]
  - Pulmonary pain [Unknown]
  - Headache [Unknown]
  - Bronchospasm [Unknown]
  - Chronic sinusitis [Unknown]
  - Migraine [Not Recovered/Not Resolved]
  - Injection site reaction [Unknown]
  - Drug ineffective [Recovering/Resolving]
  - Pain [Not Recovered/Not Resolved]
  - Myocardial infarction [Unknown]
  - Pneumonia [Recovered/Resolved]
  - Blindness [Not Recovered/Not Resolved]
  - Influenza [Not Recovered/Not Resolved]
  - Rickets [Not Recovered/Not Resolved]
  - Sleep disorder [Unknown]
  - Speech disorder [Recovered/Resolved]
  - Product administration error [Not Recovered/Not Resolved]
  - Immunosuppression [Not Recovered/Not Resolved]
  - Haemoptysis [Recovered/Resolved]
  - Sedation [Not Recovered/Not Resolved]
  - Micturition disorder [Not Recovered/Not Resolved]
  - Dysphonia [Recovered/Resolved]
  - Wheezing [Not Recovered/Not Resolved]
  - Catarrh [Not Recovered/Not Resolved]
  - Coma [Recovered/Resolved]
  - Eye pain [Not Recovered/Not Resolved]
  - Anaemia [Not Recovered/Not Resolved]
  - Deafness [Unknown]
  - Breast pain [Not Recovered/Not Resolved]
  - Asthma [Unknown]
  - Fatigue [Not Recovered/Not Resolved]
  - Pleural effusion [Recovered/Resolved]
  - Glaucoma [Not Recovered/Not Resolved]
  - Depressed mood [Not Recovered/Not Resolved]
  - Cardiac arrest [Not Recovered/Not Resolved]
  - Tremor [Unknown]
  - Ocular discomfort [Not Recovered/Not Resolved]
  - Chest pain [Not Recovered/Not Resolved]
  - Lung disorder [Not Recovered/Not Resolved]
  - Feeling abnormal [Not Recovered/Not Resolved]
  - Malaise [Not Recovered/Not Resolved]
  - Blood immunoglobulin E increased [Not Recovered/Not Resolved]
  - Metrorrhagia [Recovered/Resolved]
  - Skin burning sensation [Not Recovered/Not Resolved]
  - Hyperhidrosis [Unknown]

NARRATIVE: CASE EVENT DATE: 2003
